FAERS Safety Report 8862464 (Version 1)
Quarter: 2012Q4

REPORT INFORMATION
  Report Type: 
  Country: US (occurrence: US)
  Receive Date: 20121026
  Receipt Date: 20121026
  Transmission Date: 20130627
  Serious: Yes (Hospitalization)
  Sender: FDA-Public Use
  Company Number: US-BAYER-2012-109542

PATIENT
  Age: 30 Year
  Sex: Female

DRUGS (8)
  1. YASMIN [Suspect]
     Indication: CONTRACEPTION
  2. KEPPRA [Concomitant]
     Indication: HYPERTENSION
     Dosage: 500 mg, BID
  3. HYDROCHLOROTHIAZIDE [Concomitant]
     Indication: HYPERTENSION
     Dosage: 25 mg, daily
  4. DITROPAN XL [Concomitant]
     Dosage: UNK UNK, UNK
  5. CYMBALTA [Concomitant]
     Dosage: 60 mg, daily
  6. SOMA [Concomitant]
     Dosage: 350 mg, 1 tablet daily
  7. NAPROXEN [Concomitant]
     Dosage: 500 mg, BID
  8. PERCOCET [Concomitant]
     Indication: PAIN
     Dosage: UNK UNK, PRN

REACTIONS (1)
  - Pulmonary embolism [None]
